FAERS Safety Report 16989447 (Version 2)
Quarter: 2019Q4

REPORT INFORMATION
  Report Type: Spontaneous
  Country: US (occurrence: US)
  Receive Date: 20191104
  Receipt Date: 20191202
  Transmission Date: 20200122
  Serious: No
  Sender: FDA-Public Use
  Company Number: US-PFIZER INC-2019475166

PATIENT
  Age: 83 Year
  Sex: Female
  Weight: 63.4 kg

DRUGS (3)
  1. PREGABALIN. [Suspect]
     Active Substance: PREGABALIN
     Indication: TYPE 2 DIABETES MELLITUS
     Dosage: 150 MG, 2X/DAY
  2. PREGABALIN. [Suspect]
     Active Substance: PREGABALIN
     Indication: BURNING SENSATION
  3. PREGABALIN. [Suspect]
     Active Substance: PREGABALIN
     Indication: PAIN

REACTIONS (1)
  - Drug ineffective [Not Recovered/Not Resolved]
